FAERS Safety Report 6267593-3 (Version None)
Quarter: 2009Q3

REPORT INFORMATION
  Report Type: 
  Country: None (occurrence: None)
  Receive Date: 20090714
  Receipt Date: 20090706
  Transmission Date: 20100115
  Serious: Yes (Hospitalization)
  Sender: FDA-Public Use
  Company Number: US-GENENTECH-249413

PATIENT
  Sex: Male
  Weight: 74.376 kg

DRUGS (3)
  1. BEVACIZUMAB [Suspect]
     Indication: NON-SMALL CELL LUNG CANCER
     Dosage: 1184 MG, Q3W
     Route: 042
     Dates: start: 20071001
  2. CARBOPLATIN [Suspect]
     Indication: NON-SMALL CELL LUNG CANCER
     Dosage: 703 UNK, Q3W
     Route: 042
     Dates: start: 20070910
  3. TAXOL [Suspect]
     Indication: NON-SMALL CELL LUNG CANCER
     Dosage: 398 UNK, Q3W
     Route: 042
     Dates: start: 20070910

REACTIONS (2)
  - MENTAL STATUS CHANGES [None]
  - NEUTROPENIA [None]
